FAERS Safety Report 7467009-5 (Version None)
Quarter: 2011Q2

REPORT INFORMATION
  Report Type: 
  Country: None (occurrence: None)
  Receive Date: 20110428
  Receipt Date: 20110414
  Transmission Date: 20111010
  Serious: Yes (Life-Threatening, Hospitalization)
  Sender: FDA-Public Use
  Company Number: VAL_00562_2011

PATIENT
  Sex: Female

DRUGS (13)
  1. CALCITRIOL [Suspect]
     Indication: PRODUCT USED FOR UNKNOWN INDICATION
     Dosage: (DF)
  2. ALLOPURINOL [Concomitant]
  3. HYDROCORTISON /00028601/ [Concomitant]
  4. SOMATROPIN (SOMATROPIN) [Suspect]
     Indication: HYPOPITUITARISM
     Dosage: (0.4 MG QD)
     Dates: start: 20100520
  5. EZETIMIBE [Concomitant]
  6. LEVEMIR [Concomitant]
  7. KATADOLON /00890102/ [Concomitant]
  8. BONDIOL [Concomitant]
  9. NOVORAPID [Concomitant]
  10. PANTOPRAZOL [Concomitant]
  11. LYRICA [Concomitant]
  12. EZETIMIBE [Concomitant]
  13. LEVOTHYROXINE SODIUM [Concomitant]

REACTIONS (1)
  - RENAL FAILURE ACUTE [None]
